FAERS Safety Report 8270866-6 (Version None)
Quarter: 2012Q2

REPORT INFORMATION
  Report Type: 
  Country: None (occurrence: None)
  Receive Date: 20120410
  Receipt Date: 20120410
  Transmission Date: 20120825
  Serious: Yes (Hospitalization, Other)
  Sender: FDA-Public Use
  Company Number: None

PATIENT
  Age: 25 Year
  Sex: Male
  Weight: 89.8 kg

DRUGS (4)
  1. CHLORPROMAZINE [Concomitant]
     Indication: SCHIZOPHRENIA
     Dosage: 200
     Route: 048
     Dates: start: 20110927, end: 20120124
  2. FAZACLO ODT [Suspect]
     Indication: SCHIZOPHRENIA
     Dosage: 300 MG
     Route: 048
     Dates: start: 20111216, end: 20120124
  3. HALOPERIDOL [Concomitant]
     Route: 048
  4. CLONAZEPAM [Concomitant]
     Route: 048

REACTIONS (6)
  - MEGACOLON [None]
  - CONFUSIONAL STATE [None]
  - INTESTINAL PERFORATION [None]
  - SEPTIC SHOCK [None]
  - ASTHENIA [None]
  - MULTI-ORGAN FAILURE [None]
